FAERS Safety Report 7375005-1 (Version None)
Quarter: 2011Q1

REPORT INFORMATION
  Report Type: 
  Country: None (occurrence: None)
  Receive Date: 20110325
  Receipt Date: 20110314
  Transmission Date: 20110831
  Serious: Yes (Other)
  Sender: FDA-Public Use
  Company Number: PHHY2011US21347

PATIENT
  Sex: Male
  Weight: 88.5 kg

DRUGS (1)
  1. EXJADE [Suspect]
     Indication: IRON OVERLOAD
     Route: 048

REACTIONS (3)
  - DIARRHOEA [None]
  - LACTOSE INTOLERANCE [None]
  - FLATULENCE [None]
